FAERS Safety Report 9996304 (Version 1)
Quarter: 2014Q1

REPORT INFORMATION
  Report Type: Spontaneous
  Country: US (occurrence: None)
  Receive Date: 20140310
  Receipt Date: 20140310
  Transmission Date: 20141002
  Serious: Yes (Other)
  Sender: FDA-Public Use
  Company Number: None

PATIENT
  Age: 29 Year
  Sex: Male
  Weight: 77.11 kg

DRUGS (1)
  1. VALACYCLOVIR [Suspect]
     Indication: ORAL HERPES
     Dosage: 1 PILL ONCE DAILY TAKEN BY MOUTH
     Route: 048
     Dates: start: 20140101, end: 20140306

REACTIONS (4)
  - Chest pain [None]
  - Palpitations [None]
  - Yellow skin [None]
  - Feeling abnormal [None]
